FAERS Safety Report 8544165-9 (Version None)
Quarter: 2012Q3

REPORT INFORMATION
  Report Type: 
  Country: None (occurrence: None)
  Receive Date: 20120727
  Receipt Date: 20120719
  Transmission Date: 20120928
  Serious: Yes (Other)
  Sender: FDA-Public Use
  Company Number: FR-JNJFOC-20120611113

PATIENT
  Age: 19 Year
  Sex: Male

DRUGS (7)
  1. TRUVADA [Suspect]
     Indication: HIV INFECTION
     Route: 048
     Dates: start: 20100901
  2. NORVIR [Suspect]
     Indication: HIV INFECTION
     Route: 048
  3. PREZISTA [Suspect]
     Route: 048
  4. NORVIR [Suspect]
     Route: 048
     Dates: start: 20100901
  5. ISENTRESS [Concomitant]
     Indication: HIV INFECTION
     Route: 048
     Dates: start: 20100901, end: 20101101
  6. PREZISTA [Suspect]
     Indication: HIV INFECTION
     Route: 048
     Dates: start: 20100901
  7. BILTRICIDE [Concomitant]
     Indication: INFECTION PARASITIC
     Dosage: TREATMENT STOPPED AFTER 3 COURSES ON 28-APR-2012, 02-MAY-2012 AND 12-MAY-2012
     Route: 065
     Dates: start: 20120401

REACTIONS (6)
  - EOSINOPHILIA [None]
  - ASPARTATE AMINOTRANSFERASE INCREASED [None]
  - CHOLESTASIS [None]
  - CYTOLYTIC HEPATITIS [None]
  - GAMMA-GLUTAMYLTRANSFERASE INCREASED [None]
  - ALANINE AMINOTRANSFERASE INCREASED [None]
